FAERS Safety Report 14342860 (Version 1)
Quarter: 2017Q4

REPORT INFORMATION
  Report Type: Spontaneous
  Country: US (occurrence: US)
  Receive Date: 20171229
  Receipt Date: 20171229
  Transmission Date: 20180321
  Serious: Yes (Other)
  Sender: FDA-Public Use
  Company Number: None

PATIENT
  Age: 75 Year
  Sex: Male
  Weight: 94.5 kg

DRUGS (2)
  1. MULTIPLE [Concomitant]
  2. MOMETASONE FUROATE 50 MCG NASAL SPRAY [Suspect]
     Active Substance: MOMETASONE FUROATE
     Indication: UPPER-AIRWAY COUGH SYNDROME
     Dosage: ?          QUANTITY:2 SPRAY(S);?
     Route: 055
     Dates: start: 20170907, end: 20171229

REACTIONS (3)
  - Throat irritation [None]
  - Oropharyngeal pain [None]
  - Insomnia [None]

NARRATIVE: CASE EVENT DATE: 20171229
